FAERS Safety Report 12850391 (Version 1)
Quarter: 2016Q4

REPORT INFORMATION
  Report Type: Spontaneous
  Country: ES (occurrence: ES)
  Receive Date: 20161014
  Receipt Date: 20161014
  Transmission Date: 20170207
  Serious: Yes (Other)
  Sender: FDA-Public Use
  Company Number: ES-ALLERGAN-1672428US

PATIENT

DRUGS (1)
  1. ASENAPINE MALEATE - BP [Suspect]
     Active Substance: ASENAPINE MALEATE
     Indication: MANIA
     Dosage: UNK
     Route: 048

REACTIONS (1)
  - Oromandibular dystonia [Unknown]
